FAERS Safety Report 19536575 (Version 1)
Quarter: 2021Q3

REPORT INFORMATION
  Report Type: Spontaneous
  Country: US (occurrence: US)
  Receive Date: 20210713
  Receipt Date: 20210713
  Transmission Date: 20211014
  Serious: No
  Sender: FDA-Public Use
  Company Number: None

PATIENT
  Age: 46 Year
  Sex: Male

DRUGS (1)
  1. VUMERITY [Suspect]
     Active Substance: DIROXIMEL FUMARATE
     Indication: MULTIPLE SCLEROSIS
     Route: 048
     Dates: start: 20210122, end: 20210211

REACTIONS (4)
  - Dyspepsia [None]
  - Haematochezia [None]
  - Abdominal pain [None]
  - Nausea [None]

NARRATIVE: CASE EVENT DATE: 20210211
